FAERS Safety Report 8321325-3 (Version None)
Quarter: 2012Q2

REPORT INFORMATION
  Report Type: 
  Country: None (occurrence: None)
  Receive Date: 20120430
  Receipt Date: 20120417
  Transmission Date: 20120825
  Serious: Yes (Other)
  Sender: FDA-Public Use
  Company Number: ES-UCBSA-055906

PATIENT
  Sex: Female

DRUGS (1)
  1. CIMZIA [Suspect]

REACTIONS (1)
  - FUNGAL INFECTION [None]
